FAERS Safety Report 8589287-1 (Version None)
Quarter: 2012Q3

REPORT INFORMATION
  Report Type: 
  Country: None (occurrence: None)
  Receive Date: 20120813
  Receipt Date: 20120808
  Transmission Date: 20120928
  Serious: Yes (Hospitalization)
  Sender: FDA-Public Use
  Company Number: JP-009507513-1208JPN004840

PATIENT

DRUGS (8)
  1. PEG-INTRON [Suspect]
     Indication: HEPATITIS C
     Dosage: 1 MICROGRAM, QD
     Dates: start: 20120607, end: 20120614
  2. OMEPRAZOLE [Concomitant]
     Indication: MALLORY-WEISS SYNDROME
     Dosage: 40 MG, QD
     Route: 042
     Dates: start: 20120611, end: 20120615
  3. PEG-INTRON [Suspect]
     Dosage: 1.5MCG/KG/WEEK
     Route: 058
     Dates: start: 20120621
  4. REBETOL [Suspect]
     Indication: HEPATITIS C
     Dosage: 600 MG, QD
     Route: 048
     Dates: start: 20120607
  5. TELAVIC [Suspect]
     Indication: HEPATITIS C
     Dosage: 2250 MG, QD
     Route: 048
  6. MOTILIUM [Concomitant]
     Indication: NAUSEA
     Dosage: 30 MG, QD
     Route: 048
     Dates: start: 20120610
  7. FERROUS SULFATE TAB [Concomitant]
     Indication: IRON DEFICIENCY ANAEMIA
     Dosage: 105 MG, QD
     Route: 048
  8. [COMPOSITION UNSPECIFIED] [Concomitant]
     Indication: MALLORY-WEISS SYNDROME
     Dosage: 10 MG, QD
     Dates: start: 20120616

REACTIONS (1)
  - MALLORY-WEISS SYNDROME [None]
